FAERS Safety Report 24820720 (Version 1)
Quarter: 2025Q1

REPORT INFORMATION
  Report Type: Spontaneous
  Country: US (occurrence: US)
  Receive Date: 20250108
  Receipt Date: 20250108
  Transmission Date: 20250409
  Serious: No
  Sender: SANOFI AVENTIS
  Company Number: US-SA-2024SA385210

PATIENT
  Age: 36 Year
  Sex: Female

DRUGS (1)
  1. DUPIXENT [Suspect]
     Active Substance: DUPILUMAB
     Indication: Dermatitis atopic
     Dosage: 300 MG, QOW
     Route: 058

REACTIONS (7)
  - Viral infection [Unknown]
  - Lymphadenitis [Unknown]
  - Cellulitis [Unknown]
  - Erythema [Unknown]
  - Skin warm [Unknown]
  - Oral herpes [Unknown]
  - Dermatitis atopic [Unknown]
